FAERS Safety Report 10150857 (Version 1)
Quarter: 2014Q2

REPORT INFORMATION
  Report Type: Spontaneous
  Country: FR (occurrence: FR)
  Receive Date: 20140502
  Receipt Date: 20140502
  Transmission Date: 20141212
  Serious: Yes (Other)
  Sender: FDA-Public Use
  Company Number: PHHY2014FR053054

PATIENT
  Age: 91 Year
  Sex: Female

DRUGS (5)
  1. COTAREG [Suspect]
     Indication: HYPERTENSION
     Dosage: 1 DF (VALS 160MG, HCTZ 25MG) QD
     Route: 048
     Dates: end: 20140428
  2. LOPERAMIDE [Concomitant]
     Indication: DIARRHOEA
     Dosage: 10 MG, QD
     Route: 048
  3. PREVISCAN [Concomitant]
     Indication: THROMBOSIS PROPHYLAXIS
     Dosage: 1 DF, QD
     Route: 048
  4. CARDENSIEL [Concomitant]
     Indication: CARDIAC FAILURE
     Dosage: 3.75 MG, QD
     Route: 048
  5. LERCANIDIPINE [Concomitant]
     Indication: HYPERTENSION
     Dosage: 1 DF, QD
     Route: 048

REACTIONS (3)
  - Aortic valve disease [Unknown]
  - Hyponatraemia [Recovering/Resolving]
  - Fatigue [Recovered/Resolved]
